FAERS Safety Report 5360756-0 (Version None)
Quarter: 2007Q2

REPORT INFORMATION
  Report Type: 
  Country: None (occurrence: None)
  Receive Date: 20070618
  Receipt Date: 20070522
  Transmission Date: 20071010
  Serious: Yes (Hospitalization)
  Sender: FDA-Public Use
  Company Number: US-JNJFOC-20070305517

PATIENT
  Sex: Male

DRUGS (8)
  1. LEVAQUIN [Suspect]
     Indication: RESPIRATORY DISORDER
     Route: 048
  2. LEVAQUIN [Suspect]
     Indication: URINARY TRACT INFECTION
     Route: 048
  3. MACROLIDE [Suspect]
     Indication: RESPIRATORY DISORDER
     Route: 042
  4. MACROLIDE [Suspect]
     Indication: URINARY TRACT INFECTION
     Route: 042
  5. AZITHROMYCIN [Concomitant]
     Indication: DRUG USE FOR UNKNOWN INDICATION
     Route: 065
  6. ZELNORM [Concomitant]
     Route: 065
  7. DEPAKOTE [Concomitant]
     Route: 065
  8. TYLENOL [Concomitant]
     Route: 065

REACTIONS (1)
  - GENERALISED OEDEMA [None]
